FAERS Safety Report 4398784-4 (Version None)
Quarter: 2004Q3

REPORT INFORMATION
  Report Type: 
  Country: None (occurrence: None)
  Receive Date: 20040715
  Receipt Date: 20040415
  Transmission Date: 20050211
  Serious: Yes (Other)
  Sender: FDA-Public Use
  Company Number: PHBS2004JP05283

PATIENT
  Age: 39 Year
  Sex: Male

DRUGS (3)
  1. LAMISIL [Suspect]
     Indication: NAIL TINEA
     Route: 048
     Dates: start: 20040404, end: 20040414
  2. LANSOPRAZOLE [Suspect]
     Dosage: 30 MG/D
     Route: 048
     Dates: start: 20040414, end: 20040414
  3. ULCERLMIN [Concomitant]
     Route: 048
     Dates: start: 20040414, end: 20040414

REACTIONS (3)
  - DERMATITIS ALLERGIC [None]
  - ERYTHEMA [None]
  - GASTRIC ULCER [None]
